FAERS Safety Report 14038463 (Version 1)
Quarter: 2017Q4

REPORT INFORMATION
  Report Type: Spontaneous
  Country: US (occurrence: US)
  Receive Date: 20171004
  Receipt Date: 20171004
  Transmission Date: 20180321
  Serious: No
  Sender: FDA-Public Use
  Company Number: US-VERTEX PHARMACEUTICALS-2017-005399

PATIENT
  Age: 25 Year
  Sex: Male

DRUGS (8)
  1. LEVOCETIRIZINE [Concomitant]
     Active Substance: LEVOCETIRIZINE
  2. PANTOPRAZOLE [Concomitant]
     Active Substance: PANTOPRAZOLE
  3. AZITHROMYCINE [Concomitant]
     Active Substance: AZITHROMYCIN DIHYDRATE
  4. URSODIOL. [Concomitant]
     Active Substance: URSODIOL
  5. SYMBICORT [Concomitant]
     Active Substance: BUDESONIDE\FORMOTEROL FUMARATE DIHYDRATE
  6. SERTRALINE [Concomitant]
     Active Substance: SERTRALINE HYDROCHLORIDE
  7. ORKAMBI [Suspect]
     Active Substance: IVACAFTOR\LUMACAFTOR
     Indication: CYSTIC FIBROSIS
     Dosage: 2 DOSAGE FORM (200/125 MG EACH), BID
     Route: 048
     Dates: start: 20170907
  8. MIRTAZAPINE. [Concomitant]
     Active Substance: MIRTAZAPINE

REACTIONS (1)
  - Nausea [Not Recovered/Not Resolved]

NARRATIVE: CASE EVENT DATE: 201709
